FAERS Safety Report 5592973-9 (Version None)
Quarter: 2008Q1

REPORT INFORMATION
  Report Type: 
  Country: None (occurrence: None)
  Receive Date: 20080116
  Receipt Date: 20080110
  Transmission Date: 20080703
  Serious: Yes (Hospitalization)
  Sender: FDA-Public Use
  Company Number: FI-JNJFOC-20080102953

PATIENT
  Sex: Female

DRUGS (14)
  1. REMICADE [Suspect]
     Route: 042
  2. REMICADE [Suspect]
     Route: 042
  3. REMICADE [Suspect]
     Route: 042
  4. REMICADE [Suspect]
     Route: 042
  5. REMICADE [Suspect]
     Route: 042
  6. REMICADE [Suspect]
     Route: 042
  7. REMICADE [Suspect]
     Route: 042
  8. REMICADE [Suspect]
     Route: 042
  9. REMICADE [Suspect]
     Route: 042
  10. REMICADE [Suspect]
     Route: 042
  11. REMICADE [Suspect]
     Indication: IRIDOCYCLITIS
     Route: 042
  12. REMICADE [Suspect]
     Indication: JUVENILE ARTHRITIS
     Route: 042
  13. ZYRTEC [Concomitant]
     Indication: PROPHYLAXIS
  14. METHOTREXATE [Concomitant]

REACTIONS (7)
  - CONJUNCTIVAL HYPERAEMIA [None]
  - DYSPNOEA [None]
  - ERYTHEMA [None]
  - INFUSION RELATED REACTION [None]
  - NAUSEA [None]
  - PHARYNGOLARYNGEAL DISCOMFORT [None]
  - PRURITUS [None]
